FAERS Safety Report 6510569-9 (Version None)
Quarter: 2009Q4

REPORT INFORMATION
  Report Type: 
  Country: None (occurrence: None)
  Receive Date: 20091222
  Receipt Date: 20091028
  Transmission Date: 20100525
  Serious: No
  Sender: FDA-Public Use
  Company Number: US-ASTRAZENECA-2009SE23220

PATIENT
  Age: 912 Month
  Sex: Female
  Weight: 76.7 kg

DRUGS (8)
  1. CRESTOR [Suspect]
     Route: 048
     Dates: start: 20090901, end: 20091028
  2. OMEPRAZOLE [Concomitant]
  3. LISINOPRIL [Concomitant]
  4. METOPROLOL TARTRATE [Concomitant]
  5. GLIPIZIDE [Concomitant]
  6. METFORMIN HCL [Concomitant]
  7. LANTUS [Concomitant]
  8. LEVOTHYROXINE SODIUM [Concomitant]

REACTIONS (8)
  - DIZZINESS [None]
  - DRY MOUTH [None]
  - HALLUCINATION [None]
  - HEADACHE [None]
  - INSOMNIA [None]
  - NAUSEA [None]
  - NIGHTMARE [None]
  - POLLAKIURIA [None]
